FAERS Safety Report 8292025 (Version 5)
Quarter: 2013Q4

REPORT INFORMATION
  Report Type: Spontaneous
  Country: GB (occurrence: GB)
  Receive Date: 20111215
  Receipt Date: 20131216
  Transmission Date: 20140711
  Serious: Yes (Hospitalization)
  Sender: FDA-Public Use
  Company Number: GB-RANBAXY-2011R1-50929

PATIENT
  Age: 75 Year
  Sex: Female
  Weight: 61 kg

DRUGS (20)
  1. CLARITHROMYCIN [Suspect]
     Indication: MALAISE
     Dosage: UNK
     Route: 048
  2. CICLOSPORIN [Suspect]
     Indication: CHRONIC LYMPHOCYTIC LEUKAEMIA
     Dosage: UNK
     Route: 048
  3. CICLOSPORIN [Suspect]
     Dosage: 110 MG, UNK
     Route: 048
  4. ALENDRONIC ACID [Concomitant]
     Indication: PRODUCT USED FOR UNKNOWN INDICATION
     Dosage: 70 MG, Q12H
  5. AMITRIPTYLINE [Concomitant]
     Indication: PRODUCT USED FOR UNKNOWN INDICATION
     Dosage: UNK
     Route: 048
  6. AMITRIPTYLINE [Concomitant]
     Dosage: 25 MG, UNK
     Route: 048
  7. ATENOLOL [Concomitant]
     Indication: PRODUCT USED FOR UNKNOWN INDICATION
     Dosage: UNK
     Route: 048
  8. ATENOLOL [Concomitant]
     Dosage: 50 MG, UNK
     Route: 048
  9. BENDROFLUMETHIAZIDE [Concomitant]
     Indication: PRODUCT USED FOR UNKNOWN INDICATION
     Dosage: UNK
     Route: 065
  10. BENDROFLUMETHIAZIDE [Concomitant]
     Dosage: 2.5 MG, UNK
  11. DEXAMETHASONE [Concomitant]
     Indication: PRODUCT USED FOR UNKNOWN INDICATION
     Dosage: 2 MG, BID
     Route: 048
  12. DEXAMETHASONE [Concomitant]
     Dosage: 2 MG, BID
     Route: 048
  13. ISOSORBIDE MONONITRATE [Concomitant]
     Indication: PRODUCT USED FOR UNKNOWN INDICATION
     Dosage: UNK
     Route: 048
  14. ISOSORBIDE MONONITRATE [Concomitant]
     Dosage: 60 MG, UNK
     Route: 048
  15. LEVOTHYROXINE [Concomitant]
     Indication: PRODUCT USED FOR UNKNOWN INDICATION
     Dosage: UNK
     Route: 048
  16. LEVOTHYROXINE [Concomitant]
     Dosage: 50 UG, UNK
     Route: 048
  17. RAMIPRIL [Concomitant]
     Indication: PRODUCT USED FOR UNKNOWN INDICATION
     Dosage: UNK
     Route: 065
  18. RAMIPRIL [Concomitant]
     Dosage: 10 MG, UNK
  19. RANITIDINE [Concomitant]
     Indication: PRODUCT USED FOR UNKNOWN INDICATION
     Dosage: 150 MG, BID
     Route: 065
  20. RANITIDINE [Concomitant]
     Dosage: 150 MG, BID

REACTIONS (1)
  - Renal failure acute [Recovering/Resolving]
